FAERS Safety Report 5404885-1 (Version None)
Quarter: 2007Q3

REPORT INFORMATION
  Report Type: 
  Country: None (occurrence: None)
  Receive Date: 20070803
  Receipt Date: 20070730
  Transmission Date: 20080115
  Serious: Yes (Other)
  Sender: FDA-Public Use
  Company Number: PHEH2007US10293

PATIENT
  Sex: Male

DRUGS (1)
  1. PROLEUKIN [Suspect]
     Dosage: ^HIGH DOSE^

REACTIONS (1)
  - BUNDLE BRANCH BLOCK LEFT [None]
